FAERS Safety Report 6643242-7 (Version None)
Quarter: 2010Q1

REPORT INFORMATION
  Report Type: 
  Country: None (occurrence: None)
  Receive Date: 20100316
  Receipt Date: 20100304
  Transmission Date: 20100710
  Serious: Yes (Other)
  Sender: FDA-Public Use
  Company Number: 2010-0634

PATIENT
  Sex: Female

DRUGS (1)
  1. DYSPORT [Suspect]
     Indication: TORTICOLLIS
     Dosage: 1000 UNITS (1000 UNITS, SINGLE CYCLE)

REACTIONS (2)
  - DYSPHAGIA [None]
  - LOWER RESPIRATORY TRACT INFECTION [None]
